FAERS Safety Report 4515790-7 (Version None)
Quarter: 2004Q4

REPORT INFORMATION
  Report Type: 
  Country: None (occurrence: None)
  Receive Date: 20041201
  Receipt Date: 20041124
  Transmission Date: 20050328
  Serious: Yes (Hospitalization)
  Sender: FDA-Public Use
  Company Number: JP-MERCK-0411USA04051

PATIENT
  Age: 71 Year
  Sex: Male

DRUGS (7)
  1. FOSAMAX [Suspect]
     Indication: OSTEOPOROSIS
     Route: 048
     Dates: start: 20041108, end: 20041112
  2. KEFLEX [Suspect]
     Indication: NASOPHARYNGITIS
     Route: 048
     Dates: start: 20041103, end: 20041110
  3. BRUFEN [Suspect]
     Indication: NASOPHARYNGITIS
     Route: 048
     Dates: start: 20041103, end: 20041110
  4. AZULENE SULFONATE SODIUM AND LEVOGLUTAMIDE [Suspect]
     Indication: NASOPHARYNGITIS
     Route: 048
     Dates: start: 20041103, end: 20041110
  5. LOXOPROFEN SODIUM [Suspect]
     Indication: BACK PAIN
     Route: 048
     Dates: start: 20041015, end: 20041112
  6. SIGMART [Concomitant]
     Indication: ARRHYTHMIA
     Route: 048
     Dates: end: 20041112
  7. PRAVASTATIN SODIUM [Concomitant]
     Indication: HYPERLIPIDAEMIA
     Route: 048
     Dates: end: 20041112

REACTIONS (2)
  - DIALYSIS [None]
  - RENAL FAILURE ACUTE [None]
